FAERS Safety Report 13518912 (Version 1)
Quarter: 2017Q2

REPORT INFORMATION
  Report Type: Spontaneous
  Country: US (occurrence: US)
  Receive Date: 20170505
  Receipt Date: 20170505
  Transmission Date: 20170830
  Serious: Yes (Other)
  Sender: FDA-Public Use
  Company Number: PHHY2017US063053

PATIENT
  Age: 19 Year
  Sex: Female

DRUGS (2)
  1. ATENOLOL. [Concomitant]
     Active Substance: ATENOLOL
     Indication: ARRHYTHMIA
     Dosage: 12.5 MG, UNK
     Route: 065
  2. NADOLOL. [Suspect]
     Active Substance: NADOLOL
     Indication: ARRHYTHMIA
     Route: 065

REACTIONS (2)
  - Major depression [Unknown]
  - Drug intolerance [Unknown]
